FAERS Safety Report 4800792-3 (Version None)
Quarter: 2005Q4

REPORT INFORMATION
  Report Type: 
  Country: None (occurrence: None)
  Receive Date: 20051011
  Receipt Date: 20050930
  Transmission Date: 20060501
  Serious: Yes (Death, Hospitalization)
  Sender: FDA-Public Use
  Company Number: T05-GER-03639-01

PATIENT
  Age: 74 Year
  Sex: Male

DRUGS (8)
  1. MEMANTINE HCL [Suspect]
     Indication: DEMENTIA ALZHEIMER'S TYPE
     Dates: start: 20050222, end: 20050301
  2. MEMANTINE HCL [Suspect]
     Indication: DEMENTIA ALZHEIMER'S TYPE
     Dosage: 5 MG QD PO
     Route: 048
     Dates: start: 20050121, end: 20050127
  3. FUROSEMIDE [Concomitant]
  4. THEOPHYLLINE [Concomitant]
  5. LEVOTHYROXINE SODIUM [Concomitant]
  6. DIPIPERON (PIPAMPERONE) [Concomitant]
  7. RISPERIDONE [Concomitant]
  8. CIATYL-Z (ZUCLOPENTHIXOL HYDROCHLORIDE) [Concomitant]

REACTIONS (2)
  - BRAIN DAMAGE [None]
  - RESPIRATORY ARREST [None]
